FAERS Safety Report 15544821 (Version 2)
Quarter: 2018Q4

REPORT INFORMATION
  Report Type: Report from Study
  Country: None (occurrence: CA)
  Receive Date: 20181024
  Receipt Date: 20181115
  Transmission Date: 20190205
  Serious: Yes (Hospitalization, Other)
  Sender: FDA-Public Use
  Company Number: CA-ABBVIE-18K-028-2526381-00

PATIENT
  Age: 63 Year
  Sex: Female
  Weight: 72.64 kg

DRUGS (6)
  1. CRESTOR [Suspect]
     Active Substance: ROSUVASTATIN CALCIUM
     Route: 065
  2. CRESTOR [Suspect]
     Active Substance: ROSUVASTATIN CALCIUM
     Route: 065
  3. HUMIRA [Suspect]
     Active Substance: ADALIMUMAB
     Indication: CROHN^S DISEASE
     Route: 058
     Dates: start: 20081014, end: 201810
  4. HUMIRA [Suspect]
     Active Substance: ADALIMUMAB
     Route: 058
     Dates: start: 2018
  5. NITRO-DUR [Suspect]
     Active Substance: NITROGLYCERIN
     Indication: PRODUCT USED FOR UNKNOWN INDICATION
     Route: 065
  6. CRESTOR [Suspect]
     Active Substance: ROSUVASTATIN CALCIUM
     Indication: PRODUCT USED FOR UNKNOWN INDICATION
     Route: 065

REACTIONS (28)
  - Bone loss [Unknown]
  - Electrocardiogram abnormal [Unknown]
  - Bronchitis [Recovering/Resolving]
  - Haemorrhoids [Unknown]
  - Eosinophilic oesophagitis [Unknown]
  - Rash [Unknown]
  - Headache [Recovered/Resolved]
  - Pneumonia [Recovering/Resolving]
  - Acute coronary syndrome [Unknown]
  - Rosacea [Unknown]
  - Angina pectoris [Unknown]
  - Coronary ostial stenosis [Unknown]
  - Dyschezia [Unknown]
  - Frequent bowel movements [Not Recovered/Not Resolved]
  - Faeces soft [Unknown]
  - Cataract [Unknown]
  - Fatigue [Not Recovered/Not Resolved]
  - Haemoptysis [Unknown]
  - Diarrhoea [Not Recovered/Not Resolved]
  - Heart injury [Not Recovered/Not Resolved]
  - Troponin increased [Unknown]
  - Sputum discoloured [Recovering/Resolving]
  - Chest discomfort [Recovered/Resolved]
  - Pain [Recovered/Resolved]
  - Arterial occlusive disease [Not Recovered/Not Resolved]
  - Chest pain [Recovered/Resolved]
  - Gastrointestinal disorder [Unknown]
  - Pain [Unknown]

NARRATIVE: CASE EVENT DATE: 2017
